FAERS Safety Report 9526808 (Version 2)
Quarter: 2013Q3

REPORT INFORMATION
  Report Type: Spontaneous
  Country: ES (occurrence: ES)
  Receive Date: 20130916
  Receipt Date: 20130925
  Transmission Date: 20140515
  Serious: Yes (Hospitalization)
  Sender: FDA-Public Use
  Company Number: ES-GLAXOSMITHKLINE-B0922733A

PATIENT
  Age: 61 Year
  Sex: Female

DRUGS (1)
  1. VOTRIENT [Suspect]
     Indication: UTERINE LEIOMYOSARCOMA
     Dosage: 400MG TWICE PER DAY
     Route: 048
     Dates: start: 20130624, end: 20130828

REACTIONS (3)
  - Pancreatitis acute [Recovered/Resolved]
  - Secondary hypothyroidism [Recovered/Resolved]
  - Dermatitis bullous [Recovered/Resolved]
